FAERS Safety Report 8575819-6 (Version None)
Quarter: 2012Q3

REPORT INFORMATION
  Report Type: 
  Country: None (occurrence: None)
  Receive Date: 20120807
  Receipt Date: 20120727
  Transmission Date: 20120928
  Serious: Yes (Other)
  Sender: FDA-Public Use
  Company Number: FR-SANOFI-AVENTIS-2012SA055764

PATIENT

DRUGS (2)
  1. SULFAMETHOXAZOLE AND TRIMETHOPRIM [Suspect]
     Indication: WHIPPLE'S DISEASE
     Route: 048
  2. RIFAMPICIN [Suspect]
     Indication: WHIPPLE'S DISEASE
     Route: 065

REACTIONS (1)
  - CHOLESTASIS [None]
